FAERS Safety Report 8555728-9 (Version None)
Quarter: 2012Q3

REPORT INFORMATION
  Report Type: 
  Country: None (occurrence: None)
  Receive Date: 20120801
  Receipt Date: 20120723
  Transmission Date: 20120928
  Serious: Yes (Hospitalization, Other)
  Sender: FDA-Public Use
  Company Number: US-MSD-1207USA011402

PATIENT

DRUGS (17)
  1. ZOCOR [Suspect]
     Dosage: 20 MG, 40 MG
  2. GEMFIBROZIL [Suspect]
     Dosage: 600 MG, BID
  3. FINASTERIDE [Suspect]
     Dosage: 5 MG, UNK
  4. SODIUM POLYSTYRENE SULFONATE [Concomitant]
  5. TRAVOPROST [Concomitant]
  6. DOXAZOSIN MESYLATE [Suspect]
     Dosage: 8 MG, UNK
  7. ERGOCALCIFEROL [Concomitant]
  8. AMLODIPINE [Suspect]
     Dosage: 10 MG, UNK
  9. LEVOTHYROXINE SODIUM [Concomitant]
  10. LANTUS [Concomitant]
  11. ASPIRIN [Concomitant]
  12. FERROUS SULFATE TAB [Concomitant]
  13. LACTULOSE [Concomitant]
  14. HYDRALAZINE HCL [Concomitant]
  15. METOPROLOL TARTRATE [Concomitant]
  16. LISINOPRIL [Concomitant]
  17. FUROSEMIDE [Concomitant]

REACTIONS (12)
  - GAIT DISTURBANCE [None]
  - MITRAL VALVE INCOMPETENCE [None]
  - ANTINUCLEAR ANTIBODY POSITIVE [None]
  - PARAESTHESIA [None]
  - ILEUS [None]
  - MYOPATHY [None]
  - TEARFULNESS [None]
  - ANXIETY [None]
  - RHABDOMYOLYSIS [None]
  - PAIN [None]
  - TRICUSPID VALVE INCOMPETENCE [None]
  - BLOOD PRESSURE INCREASED [None]
